FAERS Safety Report 18845657 (Version 1)
Quarter: 2021Q1

REPORT INFORMATION
  Report Type: Spontaneous
  Country: US (occurrence: US)
  Receive Date: 20210204
  Receipt Date: 20210204
  Transmission Date: 20210419
  Serious: Yes (Hospitalization)
  Sender: FDA-Public Use
  Company Number: None

PATIENT
  Age: 61 Year
  Sex: Female

DRUGS (11)
  1. AVONEX [Suspect]
     Active Substance: INTERFERON BETA-1A
     Indication: MULTIPLE SCLEROSIS
     Dosage: ?          OTHER FREQUENCY:ONCE A WEEK;?
     Route: 030
     Dates: start: 20131127
  2. METFORMIN [Concomitant]
     Active Substance: METFORMIN HYDROCHLORIDE
  3. NEURONTIN [Concomitant]
     Active Substance: GABAPENTIN
  4. DRAMAMINE [Concomitant]
     Active Substance: DIMENHYDRINATE
  5. IBUPROFEN. [Concomitant]
     Active Substance: IBUPROFEN
  6. NAPROSYN [Concomitant]
     Active Substance: NAPROXEN
  7. VIT D [Concomitant]
     Active Substance: VITAMIN D NOS
  8. FUROSEMIDE. [Concomitant]
     Active Substance: FUROSEMIDE
  9. MULTIVITAMIN [Concomitant]
     Active Substance: VITAMINS
  10. AMANTADINE. [Concomitant]
     Active Substance: AMANTADINE HYDROCHLORIDE
  11. ZYRTEC [Concomitant]
     Active Substance: CETIRIZINE HYDROCHLORIDE

REACTIONS (2)
  - Depression [None]
  - Knee arthroplasty [None]

NARRATIVE: CASE EVENT DATE: 20200801
